FAERS Safety Report 15730108 (Version 1)
Quarter: 2018Q4

REPORT INFORMATION
  Report Type: Spontaneous
  Country: US (occurrence: US)
  Receive Date: 20181201
  Receipt Date: 20181201
  Transmission Date: 20190205
  Serious: Yes (Life-Threatening, Disabling)
  Sender: FDA-Public Use
  Company Number: None

PATIENT
  Age: 56 Year
  Sex: Female
  Weight: 77.4 kg

DRUGS (6)
  1. LISINIPRIL 20-12.5 [Concomitant]
  2. LORTAB [Suspect]
     Active Substance: ACETAMINOPHEN\HYDROCODONE BITARTRATE
  3. ESTROGEN PROGESTERONE [Concomitant]
  4. XANAX 0.5 [Concomitant]
  5. XANAX [Suspect]
     Active Substance: ALPRAZOLAM
     Indication: PAIN
     Route: 048
     Dates: start: 20000101
  6. LORATAB 10-325 [Concomitant]

REACTIONS (2)
  - Suicidal ideation [None]
  - Drug dependence [None]

NARRATIVE: CASE EVENT DATE: 20181201
